FAERS Safety Report 4404202-X (Version None)
Quarter: 2004Q3

REPORT INFORMATION
  Report Type: 
  Country: None (occurrence: None)
  Receive Date: 20040719
  Receipt Date: 20040713
  Transmission Date: 20050211
  Serious: Yes (Hospitalization)
  Sender: FDA-Public Use
  Company Number: MK200407-0094-1

PATIENT
  Age: 50 Year
  Sex: Male

DRUGS (2)
  1. ANAFRANIL [Suspect]
     Indication: DEPRESSION
     Dosage: 25MG, DAILY
  2. FLUVOXAMINE 100MG [Suspect]
     Indication: DEPRESSION
     Dosage: 100MG, DAILY

REACTIONS (1)
  - MANIA [None]
